FAERS Safety Report 17686364 (Version 1)
Quarter: 2020Q2

REPORT INFORMATION
  Report Type: Spontaneous
  Country: FR (occurrence: FR)
  Receive Date: 20200420
  Receipt Date: 20200420
  Transmission Date: 20200714
  Serious: Yes (Hospitalization)
  Sender: FDA-Public Use
  Company Number: FR-BAUSCH-BL-2020-010942

PATIENT
  Age: 87 Year
  Sex: Female

DRUGS (1)
  1. PREDNISOLONE. [Suspect]
     Active Substance: PREDNISOLONE
     Indication: IMMUNOBLASTIC LYMPHOMA
     Dosage: DAILY
     Route: 065

REACTIONS (1)
  - Nocardiosis [Recovered/Resolved]
